FAERS Safety Report 21675845 (Version 1)
Quarter: 2022Q4

REPORT INFORMATION
  Report Type: Spontaneous
  Country: US (occurrence: None)
  Receive Date: 20221202
  Receipt Date: 20221202
  Transmission Date: 20230112
  Serious: Yes (Other)
  Sender: FDA-Public Use
  Company Number: None

PATIENT
  Age: 40 Year
  Sex: Female
  Weight: 58.5 kg

DRUGS (1)
  1. QELBREE [Suspect]
     Active Substance: VILOXAZINE HYDROCHLORIDE
     Indication: Attention deficit hyperactivity disorder
     Dosage: OTHER QUANTITY : 3 CAPSULE(S);?
     Route: 048
     Dates: start: 20221104

REACTIONS (2)
  - Urine analysis abnormal [None]
  - Urine amphetamine positive [None]

NARRATIVE: CASE EVENT DATE: 20221122
